FAERS Safety Report 23854140 (Version 1)
Quarter: 2024Q2

REPORT INFORMATION
  Report Type: Spontaneous
  Country: RO (occurrence: RO)
  Receive Date: 20240514
  Receipt Date: 20240514
  Transmission Date: 20240716
  Serious: Yes (Other)
  Sender: FDA-Public Use
  Company Number: RO-FreseniusKabi-FK202407483

PATIENT
  Age: 53 Year
  Sex: Female

DRUGS (1)
  1. IRINOTECAN [Suspect]
     Active Substance: IRINOTECAN
     Indication: Oesophageal squamous cell carcinoma
     Dosage: RECEIVING ONE CYCLE EVERY TWO WEEKS?FORM OF ADMIN.- INFUSION
     Route: 042
     Dates: start: 202305

REACTIONS (1)
  - Anaphylactic reaction [Recovered/Resolved]
